FAERS Safety Report 7221221-9 (Version None)
Quarter: 2011Q1

REPORT INFORMATION
  Report Type: 
  Country: None (occurrence: None)
  Receive Date: 20110103
  Receipt Date: 20101220
  Transmission Date: 20110831
  Serious: Yes (Hospitalization)
  Sender: FDA-Public Use
  Company Number: 024137

PATIENT
  Age: 38 Year
  Sex: Female

DRUGS (4)
  1. KEPPRA [Suspect]
     Dosage: 500 MG BID ORAL
     Route: 048
     Dates: start: 20101206, end: 20101214
  2. ALEVIATIN [Concomitant]
  3. TEGRETOL [Concomitant]
  4. LAMICTAL [Concomitant]

REACTIONS (3)
  - ASPARTATE AMINOTRANSFERASE INCREASED [None]
  - WHITE BLOOD CELL COUNT DECREASED [None]
  - ALANINE AMINOTRANSFERASE INCREASED [None]
